FAERS Safety Report 5712124-7 (Version None)
Quarter: 2008Q2

REPORT INFORMATION
  Report Type: 
  Country: None (occurrence: None)
  Receive Date: 20080421
  Receipt Date: 20080421
  Transmission Date: 20081010
  Serious: Yes (Hospitalization)
  Sender: FDA-Public Use
  Company Number: None

PATIENT
  Age: 53 Year
  Sex: Female
  Weight: 66.2252 kg

DRUGS (1)
  1. AVELOX [Suspect]
     Indication: SINUSITIS
     Dosage: 400 MG ONCE PER DAY PO
     Route: 048
     Dates: start: 20080418, end: 20080418

REACTIONS (12)
  - APHASIA [None]
  - ASTHENIA [None]
  - BLOOD PRESSURE DECREASED [None]
  - FEELING ABNORMAL [None]
  - HYPERHIDROSIS [None]
  - HYPOAESTHESIA [None]
  - ILL-DEFINED DISORDER [None]
  - NAUSEA [None]
  - PARAESTHESIA [None]
  - TREMOR [None]
  - VISION BLURRED [None]
  - VOMITING [None]
